FAERS Safety Report 6416680-5 (Version None)
Quarter: 2009Q4

REPORT INFORMATION
  Report Type: 
  Country: None (occurrence: None)
  Receive Date: 20091027
  Receipt Date: 20091021
  Transmission Date: 20100525
  Serious: No
  Sender: FDA-Public Use
  Company Number: US-B.I. PHARMACEUTICALS,INC./RIDGEFIELD-2009-BP-12272BP

PATIENT
  Age: 70 Year
  Sex: Male
  Weight: 104.33 kg

DRUGS (4)
  1. ATROVENT HFA [Suspect]
     Indication: EMPHYSEMA
     Route: 055
  2. ATROVENT HFA [Suspect]
     Indication: ASTHMA
  3. MAXAIR [Suspect]
     Indication: EMPHYSEMA
     Route: 055
  4. MAXAIR [Suspect]
     Indication: ASTHMA

REACTIONS (1)
  - GINGIVAL PAIN [None]
